FAERS Safety Report 6661894-2 (Version None)
Quarter: 2010Q1

REPORT INFORMATION
  Report Type: 
  Country: None (occurrence: None)
  Receive Date: 20100331
  Receipt Date: 20090917
  Transmission Date: 20100710
  Serious: Yes (Hospitalization)
  Sender: FDA-Public Use
  Company Number: US-BRISTOL-MYERS SQUIBB COMPANY-14783823

PATIENT
  Age: 88 Year
  Sex: Male
  Weight: 78 kg

DRUGS (1)
  1. ERBITUX [Suspect]
     Indication: HYPOPHARYNGEAL CANCER
     Route: 042
     Dates: start: 20090805

REACTIONS (1)
  - INFUSION RELATED REACTION [None]
